FAERS Safety Report 4714684-1 (Version None)
Quarter: 2005Q3

REPORT INFORMATION
  Report Type: 
  Country: None (occurrence: None)
  Receive Date: 20050712
  Receipt Date: 20050629
  Transmission Date: 20060218
  Serious: Yes (Death, Hospitalization)
  Sender: FDA-Public Use
  Company Number: 2005094098

PATIENT
  Age: 21 Year
  Sex: Female

DRUGS (2)
  1. DILANTIN [Suspect]
     Indication: EPILEPSY
     Dosage: 200 MG (100 MG, 2 IN 1 D); ORAL
     Route: 048
     Dates: start: 20050201, end: 20050201
  2. AMOXICILLIN [Suspect]
     Indication: CONJUNCTIVITIS
     Dosage: 1500 MG (500 MG, 3 IN 1 D); ORAL
     Route: 048
     Dates: start: 20050201, end: 20050201

REACTIONS (3)
  - CONJUNCTIVITIS [None]
  - DRUG INTERACTION [None]
  - STEVENS-JOHNSON SYNDROME [None]
